FAERS Safety Report 15477647 (Version 2)
Quarter: 2018Q4

REPORT INFORMATION
  Report Type: Spontaneous
  Country: US (occurrence: US)
  Receive Date: 20181009
  Receipt Date: 20181016
  Transmission Date: 20190205
  Serious: Yes (Death)
  Sender: FDA-Public Use
  Company Number: US-CELGENEUS-USA-20181001045

PATIENT
  Sex: Female

DRUGS (8)
  1. REVLIMID [Suspect]
     Active Substance: LENALIDOMIDE
     Indication: PLASMA CELL MYELOMA
     Dosage: 25 MILLIGRAM
     Route: 048
     Dates: start: 20180906, end: 201809
  2. SENNA [Concomitant]
     Active Substance: SENNA LEAF\SENNOSIDES\SENNOSIDES A AND B
     Indication: CONSTIPATION
     Dosage: 17.2 MILLIGRAM
     Route: 048
  3. FRAGMIN [Concomitant]
     Active Substance: DALTEPARIN SODIUM
     Indication: PULMONARY EMBOLISM
  4. ACYCLOVIR. [Concomitant]
     Active Substance: ACYCLOVIR
     Indication: PROPHYLAXIS
     Dosage: 800 MILLIGRAM
     Route: 048
  5. REVLIMID [Suspect]
     Active Substance: LENALIDOMIDE
     Indication: CENTRAL NERVOUS SYSTEM LYMPHOMA
  6. DEXAMETHASONE. [Concomitant]
     Active Substance: DEXAMETHASONE
     Indication: BRAIN OEDEMA
     Dosage: 2 MILLIGRAM
     Route: 065
  7. TRAZODONE [Concomitant]
     Active Substance: TRAZODONE HYDROCHLORIDE
     Indication: INSOMNIA
     Dosage: 25 MILLIGRAM
     Route: 048
  8. FRAGMIN [Concomitant]
     Active Substance: DALTEPARIN SODIUM
     Indication: DEEP VEIN THROMBOSIS
     Dosage: 12500 UNITS
     Route: 050

REACTIONS (1)
  - Central nervous system lymphoma [Fatal]

NARRATIVE: CASE EVENT DATE: 2018
